FAERS Safety Report 15626928 (Version 1)
Quarter: 2018Q4

REPORT INFORMATION
  Report Type: Spontaneous
  Country: ZA (occurrence: ZA)
  Receive Date: 20181116
  Receipt Date: 20181116
  Transmission Date: 20190205
  Serious: Yes (Hospitalization)
  Sender: FDA-Public Use
  Company Number: ZA-PFIZER INC-2018469106

PATIENT
  Age: 72 Year
  Sex: Female

DRUGS (8)
  1. STILPANE [CAFFEINE;CODEINE PHOSPHATE;MEPROBAMATE;PARACETAMOL] [Suspect]
     Active Substance: ACETAMINOPHEN\CAFFEINE\CODEINE PHOSPHATE\MEPROBAMATE
     Dosage: 370 MG, UNK
  2. ASPAVOR [Suspect]
     Active Substance: ATORVASTATIN
     Dosage: 10 MG, UNK
  3. PAX (DEXIBUPROFEN) [Suspect]
     Active Substance: DEXIBUPROFEN
     Dosage: 10 MG, UNK
  4. OXPOLA [Suspect]
     Active Substance: PRAMIPEXOLE DIHYDROCHLORIDE
     Dosage: 0.125 MG, UNK
  5. TREPILINE [AMITRIPTYLINE] [Suspect]
     Active Substance: AMITRIPTYLINE
     Dosage: 25 MG, UNK
  6. DORMONOCT [Suspect]
     Active Substance: LOPRAZOLAM
     Dosage: 2 MG, UNK
  7. LESTAVOR [Suspect]
     Active Substance: ATORVASTATIN CALCIUM
     Dosage: 10 MG, UNK
  8. CILIFT [Suspect]
     Active Substance: CITALOPRAM HYDROBROMIDE
     Dosage: 20 MG, UNK

REACTIONS (1)
  - Fall [Unknown]
